FAERS Safety Report 25526302 (Version 1)
Quarter: 2025Q3

REPORT INFORMATION
  Report Type: Spontaneous
  Country: EU (occurrence: EU)
  Receive Date: 20250707
  Receipt Date: 20250707
  Transmission Date: 20251020
  Serious: Yes (Other)
  Sender: NOVARTIS
  Company Number: EU-002147023-NVSC2025IT106499

PATIENT

DRUGS (1)
  1. FINGOLIMOD [Suspect]
     Active Substance: FINGOLIMOD
     Indication: Secondary progressive multiple sclerosis
     Route: 065

REACTIONS (2)
  - Lymphopenia [Unknown]
  - Off label use [Unknown]
